FAERS Safety Report 7164776-5 (Version None)
Quarter: 2010Q4

REPORT INFORMATION
  Report Type: 
  Country: None (occurrence: None)
  Receive Date: 20101215
  Receipt Date: 20101207
  Transmission Date: 20110411
  Serious: No
  Sender: FDA-Public Use
  Company Number: US-US-EMD SERONO, INC.-231269J09USA

PATIENT
  Sex: Female
  Weight: 80 kg

DRUGS (6)
  1. REBIF [Suspect]
     Indication: MULTIPLE SCLEROSIS
     Route: 058
     Dates: start: 20090806
  2. NORVASC [Concomitant]
     Indication: BLOOD PRESSURE
  3. LOSARTAN [Concomitant]
     Indication: BLOOD PRESSURE
  4. METFORMIN HCL [Concomitant]
     Indication: DIABETES MELLITUS
  5. GLIPIZIDE [Concomitant]
     Indication: DIABETES MELLITUS
  6. CYMBALTA [Concomitant]
     Indication: DEPRESSION

REACTIONS (2)
  - DIARRHOEA [None]
  - VIRAL UPPER RESPIRATORY TRACT INFECTION [None]
